FAERS Safety Report 19157651 (Version 1)
Quarter: 2021Q2

REPORT INFORMATION
  Report Type: Spontaneous
  Country: US (occurrence: US)
  Receive Date: 20210420
  Receipt Date: 20210420
  Transmission Date: 20210717
  Serious: Yes (Hospitalization)
  Sender: FDA-Public Use
  Company Number: US-MYLANLABS-2021M1023208

PATIENT
  Age: 56 Year
  Sex: Male

DRUGS (4)
  1. CARBOPLATIN. [Suspect]
     Active Substance: CARBOPLATIN
     Indication: PANCREATIC CARCINOMA METASTATIC
  2. IRINOTECAN [Suspect]
     Active Substance: IRINOTECAN
     Indication: PANCREATIC CARCINOMA METASTATIC
  3. IRINOTECAN [Suspect]
     Active Substance: IRINOTECAN
     Indication: CUTANEOUS LYMPHOMA
     Dosage: UNK
     Route: 065
  4. CARBOPLATIN. [Suspect]
     Active Substance: CARBOPLATIN
     Indication: CUTANEOUS LYMPHOMA
     Dosage: UNK
     Route: 065

REACTIONS (3)
  - Candida infection [Recovered/Resolved]
  - Device occlusion [Recovered/Resolved]
  - Cholangitis infective [Recovered/Resolved]
